FAERS Safety Report 13611631 (Version 10)
Quarter: 2021Q3

REPORT INFORMATION
  Report Type: Spontaneous
  Country: JP (occurrence: JP)
  Receive Date: 20170605
  Receipt Date: 20210819
  Transmission Date: 20211014
  Serious: Yes (Death, Hospitalization, Other)
  Sender: FDA-Public Use
  Company Number: JP-BRISTOL-MYERS SQUIBB COMPANY-BMS-2017-035396

PATIENT
  Age: 43 Year
  Sex: Male
  Weight: 42 kg

DRUGS (9)
  1. LIXIANA [Concomitant]
     Active Substance: EDOXABAN TOSYLATE
     Indication: VENA CAVA THROMBOSIS
     Dosage: 30 MILLIGRAM, QD
     Route: 048
     Dates: start: 20170202, end: 20170408
  2. FAMOTIDINE. [Concomitant]
     Active Substance: FAMOTIDINE
     Indication: STEROID THERAPY
     Dosage: 20 MILLIGRAM, BID
     Route: 048
     Dates: start: 20170307, end: 2017
  3. LINTON [HALOPERIDOL] [Concomitant]
     Indication: PRODUCT USED FOR UNKNOWN INDICATION
     Dosage: UNK
     Route: 065
     Dates: start: 20170321
  4. GASTER [Concomitant]
     Active Substance: FAMOTIDINE
     Indication: STEROID THERAPY
     Dosage: UNK
     Route: 065
     Dates: start: 20170407
  5. DECADRAN [DEXAMETHASONE SODIUM PHOSPHATE] [Concomitant]
     Indication: PRODUCT USED FOR UNKNOWN INDICATION
     Dosage: 2 MILLIGRAM, QD
     Route: 048
     Dates: start: 20170313
  6. FOLIAMIN [FOLIC ACID] [Concomitant]
     Active Substance: FOLIC ACID
     Indication: BLOOD FOLATE DECREASED
     Dosage: 5 MILLIGRAM, BID
     Route: 048
     Dates: start: 20170306, end: 20170408
  7. DAIPHEN [Concomitant]
     Active Substance: SULFAMETHOXAZOLE\TRIMETHOPRIM
     Indication: PRODUCT USED FOR UNKNOWN INDICATION
     Dosage: UNK
     Route: 048
     Dates: start: 20170403
  8. OPDIVO [Suspect]
     Active Substance: NIVOLUMAB
     Indication: NON-SMALL CELL LUNG CANCER
     Dosage: 3 MILLIGRAM/KILOGRAM, Q2WK
     Route: 041
     Dates: start: 20170329, end: 20170329
  9. OXIFAST [Concomitant]
     Active Substance: OXYCODONE
     Indication: PAIN
     Dosage: UNK
     Route: 065
     Dates: start: 20170322, end: 20170521

REACTIONS (1)
  - Immune-mediated lung disease [Fatal]
